FAERS Safety Report 18045526 (Version 3)
Quarter: 2020Q3

REPORT INFORMATION
  Report Type: Spontaneous
  Country: US (occurrence: US)
  Receive Date: 20200720
  Receipt Date: 20200929
  Transmission Date: 20201103
  Serious: Yes (Other)
  Sender: FDA-Public Use
  Company Number: US-ALLERGAN-2026621US

PATIENT
  Sex: Male

DRUGS (3)
  1. DURYSTA [Suspect]
     Active Substance: BIMATOPROST
     Indication: OPEN ANGLE GLAUCOMA
     Dosage: 10 ?G, SINGLE
     Route: 031
     Dates: start: 20200706, end: 20200710
  2. VITAMINS [Concomitant]
     Active Substance: VITAMINS
  3. HYDROCHLOROTHIAZIDE. [Concomitant]
     Active Substance: HYDROCHLOROTHIAZIDE

REACTIONS (5)
  - Vision blurred [Not Recovered/Not Resolved]
  - Corneal oedema [Not Recovered/Not Resolved]
  - Anterior chamber disorder [Not Recovered/Not Resolved]
  - Eye inflammation [Not Recovered/Not Resolved]
  - Visual acuity reduced [Recovering/Resolving]

NARRATIVE: CASE EVENT DATE: 20200708
